FAERS Safety Report 4777987-0 (Version None)
Quarter: 2005Q3

REPORT INFORMATION
  Report Type: 
  Country: None (occurrence: None)
  Receive Date: 20050921
  Receipt Date: 20050906
  Transmission Date: 20060218
  Serious: Yes (Hospitalization, Other)
  Sender: FDA-Public Use
  Company Number: GBS050918309

PATIENT
  Age: 66 Year
  Sex: Male
  Weight: 192 kg

DRUGS (9)
  1. HUMALOG MIX 75/25 [Suspect]
     Indication: DIABETES MELLITUS
     Dates: start: 20000101
  2. METFORMIN [Concomitant]
  3. FUROSEMIDE [Concomitant]
  4. PRAVASTATIN [Concomitant]
  5. ASPIRIN [Concomitant]
  6. ISOSORBIDE MONONITRATE [Concomitant]
  7. NICORANDIL [Concomitant]
  8. ATENOLOL [Concomitant]
  9. PERINDOPRIL [Concomitant]

REACTIONS (5)
  - FALL [None]
  - HYPOGLYCAEMIA [None]
  - INJECTION SITE HAEMORRHAGE [None]
  - PHARMACEUTICAL PRODUCT COMPLAINT [None]
  - PNEUMONIA [None]
